FAERS Safety Report 6088519-1 (Version None)
Quarter: 2009Q1

REPORT INFORMATION
  Report Type: 
  Country: None (occurrence: None)
  Receive Date: 20090224
  Receipt Date: 20090212
  Transmission Date: 20090719
  Serious: Yes (Hospitalization, Other)
  Sender: FDA-Public Use
  Company Number: BE-JNJFOC-20090103455

PATIENT
  Age: 41 Year
  Sex: Male

DRUGS (11)
  1. REMICADE [Suspect]
     Route: 042
  2. REMICADE [Suspect]
     Route: 042
  3. REMICADE [Suspect]
     Route: 042
  4. REMICADE [Suspect]
     Indication: RHEUMATOID ARTHRITIS
     Route: 042
  5. LEDERTREXATE [Suspect]
  6. LEDERTREXATE [Suspect]
     Indication: POLYARTHRITIS
  7. MEDROL [Concomitant]
  8. MEDROL [Concomitant]
     Indication: POLYARTHRITIS
  9. DAFALGAN [Concomitant]
  10. TRAMADOL HCL [Concomitant]
  11. SALAZOPIRINE [Concomitant]

REACTIONS (6)
  - DELIRIUM [None]
  - EUPHORIC MOOD [None]
  - HALLUCINATION [None]
  - LABORATORY TEST ABNORMAL [None]
  - MANIA [None]
  - THYMUS DISORDER [None]
